FAERS Safety Report 4882518-0 (Version None)
Quarter: 2006Q1

REPORT INFORMATION
  Report Type: 
  Country: None (occurrence: None)
  Receive Date: 20060113
  Receipt Date: 20060103
  Transmission Date: 20060701
  Serious: Yes (Hospitalization, Other)
  Sender: FDA-Public Use
  Company Number: 2006003878

PATIENT
  Age: 56 Year
  Sex: Female
  Weight: 56.246 kg

DRUGS (11)
  1. DEPO-PROVERA [Suspect]
     Indication: HORMONE REPLACEMENT THERAPY
     Dosage: 150 MG (150 MG, EVERY MONTH)
     Dates: end: 20051101
  2. SPIRIVA [Concomitant]
  3. ADVAIR DISKUS 100/50 [Concomitant]
  4. POTASSIUM (POTASSIUM) [Concomitant]
  5. PREVACID [Concomitant]
  6. PROVENTIL /OLD FORM/ (SALBUTAMOL) [Concomitant]
  7. MONTELUKAST SODIUM (MONTELUKAST SODIUM) [Concomitant]
  8. THEOPHYLLINE [Concomitant]
  9. ZELNORM [Concomitant]
  10. TRAMADOL HCL [Concomitant]
  11. CYMBALTA [Concomitant]

REACTIONS (6)
  - BONE DENSITY DECREASED [None]
  - FEELING HOT AND COLD [None]
  - HOT FLUSH [None]
  - HYPERTENSION [None]
  - PNEUMONIA [None]
  - THYROID DISORDER [None]
